FAERS Safety Report 10262663 (Version 2)
Quarter: 2014Q2

REPORT INFORMATION
  Report Type: Report from Study
  Country: US (occurrence: US)
  Receive Date: 20140626
  Receipt Date: 20140626
  Transmission Date: 20141212
  Serious: Yes (Death)
  Sender: FDA-Public Use
  Company Number: US-MYLANLABS-2013S1010750

PATIENT
  Age: 70 Year
  Sex: Female

DRUGS (18)
  1. CLOZAPINE TABLETS [Suspect]
     Indication: SCHIZOAFFECTIVE DISORDER
     Route: 048
     Dates: start: 20111108, end: 20130408
  2. CIPRO [Concomitant]
  3. FENTANYL [Concomitant]
  4. IPRATROPIUM BROMIDE AND ALBUTEROL SULFATE INHALATION SOLUTION [Concomitant]
  5. LORAZEPAM [Concomitant]
  6. HEPARIN [Concomitant]
  7. COMBIVENT [Concomitant]
  8. FLOVENT [Concomitant]
  9. OXYCODONE [Concomitant]
  10. NOVOLOG [Concomitant]
  11. ZOLPIDEM [Concomitant]
  12. PROTONIX [Concomitant]
  13. HALDOL [Concomitant]
  14. LEVOTHYROXINE [Concomitant]
  15. LABETALOL [Concomitant]
  16. METOCLOPRAMIDE [Concomitant]
  17. MYLANTA [Concomitant]
  18. TRANSDERM SCOP [Concomitant]

REACTIONS (1)
  - Death [Fatal]
